FAERS Safety Report 21741728 (Version 7)
Quarter: 2023Q2

REPORT INFORMATION
  Report Type: Spontaneous
  Country: US (occurrence: US)
  Receive Date: 20221216
  Receipt Date: 20230622
  Transmission Date: 20230722
  Serious: Yes (Other)
  Sender: FDA-Public Use
  Company Number: US-PFIZER INC-PV202200124157

PATIENT
  Age: 80 Year
  Sex: Female

DRUGS (1)
  1. IBRANCE [Suspect]
     Active Substance: PALBOCICLIB
     Dosage: 75 MG CYCLIC (DAYS 1-21 EVERY 28 DAYS ) TAKE WITH FOOD
     Route: 048

REACTIONS (4)
  - Macular degeneration [Unknown]
  - Neovascular age-related macular degeneration [Unknown]
  - Panic reaction [Unknown]
  - Memory impairment [Unknown]
